FAERS Safety Report 21550641 (Version 1)
Quarter: 2022Q4

REPORT INFORMATION
  Report Type: Spontaneous
  Country: US (occurrence: None)
  Receive Date: 20221103
  Receipt Date: 20221103
  Transmission Date: 20230112
  Serious: No
  Sender: FDA-Public Use
  Company Number: None

PATIENT
  Age: 11 Year
  Sex: Female
  Weight: 44.9 kg

DRUGS (4)
  1. MESALAMINE [Suspect]
     Active Substance: MESALAMINE
     Indication: Colitis ulcerative
     Dosage: FREQUENCY : TWICE A DAY;?
     Route: 048
     Dates: start: 20220913, end: 20220930
  2. Ferrous sulfate 325 mg PO once daily [Concomitant]
  3. Uceris 9 mg PO once daily [Concomitant]
  4. Polyethylene glycol powder 17 mg PO once daily [Concomitant]

REACTIONS (5)
  - Product substitution issue [None]
  - Therapeutic response changed [None]
  - Skin exfoliation [None]
  - Skin exfoliation [None]
  - Blister [None]

NARRATIVE: CASE EVENT DATE: 20220928
